FAERS Safety Report 25928437 (Version 2)
Quarter: 2025Q4

REPORT INFORMATION
  Report Type: Report from Study
  Country: CH (occurrence: CH)
  Receive Date: 20251016
  Receipt Date: 20251019
  Transmission Date: 20260118
  Serious: Yes (Hospitalization)
  Sender: ABBVIE
  Company Number: EU-ABBVIE-6503409

PATIENT
  Age: 82 Year
  Sex: Female
  Weight: 52 kg

DRUGS (2)
  1. CARBIDOPA [Suspect]
     Active Substance: CARBIDOPA
     Indication: Parkinson^s disease
     Dosage: MD 3.0, CRD 2.0 ML/H, CRN 2.0 ML/H, BOLUS 1.0 ML, 24-HOUR THERAPY.
     Route: 050
     Dates: start: 20211207
  2. CARBIDOPA [Suspect]
     Active Substance: CARBIDOPA
     Dosage: MD 3.0, CRD 1.8ML/H, CRN 1.8ML/H, BOLUS 1.0ML
     Route: 050

REACTIONS (2)
  - Fall [Unknown]
  - Device occlusion [Unknown]
